FAERS Safety Report 24677277 (Version 1)
Quarter: 2024Q4

REPORT INFORMATION
  Report Type: Spontaneous
  Country: US (occurrence: None)
  Receive Date: 20241129
  Receipt Date: 20241129
  Transmission Date: 20250115
  Serious: Yes (Hospitalization, Other)
  Sender: Alvotech
  Company Number: US-ALVOTECHPMS-2024-ALVOTECHPMS-002676

PATIENT
  Age: 22 Year
  Sex: Female

DRUGS (1)
  1. ADALIMUMAB [Suspect]
     Active Substance: ADALIMUMAB
     Indication: Colitis ulcerative
     Dosage: EVERY 2 WEEKS
     Route: 058

REACTIONS (3)
  - Antiphospholipid syndrome [Recovered/Resolved]
  - Glomerulonephritis proliferative [Recovered/Resolved]
  - Tubulointerstitial nephritis [Recovered/Resolved]
